FAERS Safety Report 13778136 (Version 2)
Quarter: 2017Q3

REPORT INFORMATION
  Report Type: Report from Study
  Country: US (occurrence: US)
  Receive Date: 20170721
  Receipt Date: 20170726
  Transmission Date: 20171127
  Serious: Yes (Hospitalization, Other)
  Sender: FDA-Public Use
  Company Number: US-GILEAD-2017-0279861

PATIENT
  Age: 24 Year
  Sex: Female

DRUGS (4)
  1. ADCIRCA [Concomitant]
     Active Substance: TADALAFIL
     Indication: PRODUCT USED FOR UNKNOWN INDICATION
     Dosage: UNK
     Route: 065
     Dates: start: 20170427
  2. AMBRISENTAN [Suspect]
     Active Substance: AMBRISENTAN
     Dosage: 10 MG, QD
     Route: 065
     Dates: start: 20170427
  3. REMODULIN [Suspect]
     Active Substance: TREPROSTINIL
     Indication: PRODUCT USED FOR UNKNOWN INDICATION
     Route: 065
  4. AMBRISENTAN [Suspect]
     Active Substance: AMBRISENTAN
     Indication: PRODUCT USED FOR UNKNOWN INDICATION
     Dosage: 10 MG, QD
     Route: 065
     Dates: start: 20110216

REACTIONS (11)
  - Hypertension [Unknown]
  - Infusion site discharge [Unknown]
  - Device leakage [Unknown]
  - Post procedural infection [Unknown]
  - Bacteraemia [Unknown]
  - Feeling abnormal [Unknown]
  - Infusion site erythema [Unknown]
  - Device related infection [Not Recovered/Not Resolved]
  - Inadequate aseptic technique in use of product [Unknown]
  - Headache [Unknown]
  - Nausea [Unknown]
